FAERS Safety Report 12078199 (Version 2)
Quarter: 2017Q1

REPORT INFORMATION
  Report Type: Spontaneous
  Country: US (occurrence: US)
  Receive Date: 20160215
  Receipt Date: 20170217
  Transmission Date: 20170428
  Serious: No
  Sender: FDA-Public Use
  Company Number: US-CELGENEUS-USA-2016022707

PATIENT
  Sex: Female

DRUGS (1)
  1. OTEZLA [Suspect]
     Active Substance: APREMILAST
     Indication: PRODUCT USED FOR UNKNOWN INDICATION
     Dosage: 30 MILLIGRAM
     Route: 048
     Dates: start: 20150903

REACTIONS (3)
  - Weight decreased [Recovering/Resolving]
  - Diarrhoea [Recovered/Resolved]
  - Headache [Recovered/Resolved]
